FAERS Safety Report 15988870 (Version 5)
Quarter: 2020Q4

REPORT INFORMATION
  Report Type: Report from Study
  Country: US (occurrence: US)
  Receive Date: 20190221
  Receipt Date: 20201106
  Transmission Date: 20210113
  Serious: Yes (Life-Threatening, Other)
  Sender: FDA-Public Use
  Company Number: PHEH2019US007496

PATIENT
  Age: 17 Year
  Sex: Male
  Weight: 77 kg

DRUGS (4)
  1. CYCLOPHOSPHAMIDE. [Concomitant]
     Active Substance: CYCLOPHOSPHAMIDE
     Indication: CHEMOTHERAPY
     Dosage: UNK
     Route: 065
  2. KYMRIAH [Suspect]
     Active Substance: TISAGENLECLEUCEL
     Dosage: UNK, ONCE/SINGLE
     Route: 041
     Dates: start: 20190722
  3. KYMRIAH [Suspect]
     Active Substance: TISAGENLECLEUCEL
     Indication: B-CELL TYPE ACUTE LEUKAEMIA
     Dosage: 22 ML, ONCE/SINGLE
     Route: 041
     Dates: start: 20190204
  4. FLUDARABINE [Concomitant]
     Active Substance: FLUDARABINE PHOSPHATE
     Indication: CHEMOTHERAPY
     Dosage: UNK
     Route: 065

REACTIONS (25)
  - Neurotoxicity [Recovered/Resolved]
  - Cytokine release syndrome [Recovered/Resolved]
  - Treatment failure [Unknown]
  - Paraparesis [Unknown]
  - Motor dysfunction [Unknown]
  - Lymphocyte count decreased [Unknown]
  - Haematocrit decreased [Unknown]
  - Seizure [Unknown]
  - Thrombocytopenia [Unknown]
  - Staphylococcal infection [Unknown]
  - Haemoglobin decreased [Unknown]
  - Generalised tonic-clonic seizure [Unknown]
  - Hypogammaglobulinaemia [Unknown]
  - Malignant neoplasm progression [Unknown]
  - Cytopenia [Unknown]
  - Neutropenia [Unknown]
  - Hemiparesis [Unknown]
  - Depressed level of consciousness [Unknown]
  - Pyrexia [Unknown]
  - White blood cell count decreased [Unknown]
  - Acute lymphocytic leukaemia recurrent [Unknown]
  - Hypoxia [Unknown]
  - Off label use [Unknown]
  - Tremor [Unknown]
  - Aphasia [Unknown]
